FAERS Safety Report 9641089 (Version 1)
Quarter: 2013Q4

REPORT INFORMATION
  Report Type: Spontaneous
  Country: FR (occurrence: FR)
  Receive Date: 20131023
  Receipt Date: 20131023
  Transmission Date: 20140711
  Serious: Yes (Hospitalization)
  Sender: FDA-Public Use
  Company Number: FR-ASTRAZENECA-2013SE76577

PATIENT
  Age: 17089 Day
  Sex: Male

DRUGS (6)
  1. DIPRIVAN [Suspect]
     Dosage: ONCE/SINGLE ADMINISTRATION
     Route: 042
     Dates: start: 20130904, end: 20130904
  2. CELOCURINE [Suspect]
     Dosage: ONCE/SINGLE ADMINISTRATION
     Route: 048
     Dates: start: 20130904, end: 20130904
  3. RAPIFEN [Suspect]
     Dosage: ONCE/SINGLE ADMINISTRATION
     Route: 030
     Dates: start: 20130904, end: 20130904
  4. AVLOCARDYL [Concomitant]
     Dates: start: 201306
  5. INEXIUM [Concomitant]
     Route: 048
     Dates: start: 201306
  6. ALDACTONE [Concomitant]
     Dates: start: 20130805

REACTIONS (4)
  - Hepatic failure [Not Recovered/Not Resolved]
  - Jaundice [Not Recovered/Not Resolved]
  - Condition aggravated [Not Recovered/Not Resolved]
  - Prothrombin time shortened [Unknown]
